FAERS Safety Report 9884143 (Version 1)
Quarter: 2014Q1

REPORT INFORMATION
  Report Type: Spontaneous
  Country: US (occurrence: None)
  Receive Date: 20140207
  Receipt Date: 20140207
  Transmission Date: 20141002
  Serious: No
  Sender: FDA-Public Use
  Company Number: None

PATIENT
  Age: 48 Year
  Sex: Female
  Weight: 76.2 kg

DRUGS (1)
  1. SUPRENZA [Suspect]
     Indication: WEIGHT DECREASED
     Dosage: 1/2 TAB X 2 OR 1 TAB DAILY ONCE DAILY TAKEN BY MOUTH
     Route: 048
     Dates: start: 20131125, end: 20140206

REACTIONS (2)
  - Ventricular extrasystoles [None]
  - Nausea [None]
